FAERS Safety Report 6155228-X (Version None)
Quarter: 2009Q2

REPORT INFORMATION
  Report Type: 
  Country: None (occurrence: None)
  Receive Date: 20090410
  Receipt Date: 20090410
  Transmission Date: 20091009
  Serious: Yes (Life-Threatening)
  Sender: FDA-Public Use
  Company Number: None

PATIENT
  Age: 56 Year
  Sex: Male
  Weight: 89.8122 kg

DRUGS (2)
  1. OMEPRAZOLE [Suspect]
     Indication: GASTROOESOPHAGEAL REFLUX DISEASE
     Dosage: 2.5 DAYS
     Dates: start: 20090314, end: 20090316
  2. OMEPRAZOLE [Suspect]
     Indication: HELICOBACTER INFECTION
     Dosage: 2.5 DAYS
     Dates: start: 20090314, end: 20090316

REACTIONS (4)
  - ASTHENIA [None]
  - FACE OEDEMA [None]
  - HYPOTENSION [None]
  - RASH [None]
